FAERS Safety Report 7399193-6 (Version None)
Quarter: 2011Q1

REPORT INFORMATION
  Report Type: 
  Country: None (occurrence: None)
  Receive Date: 20110328
  Receipt Date: 20110311
  Transmission Date: 20110831
  Serious: Yes (Life-Threatening, Hospitalization, Other)
  Sender: FDA-Public Use
  Company Number: AUR-APL-2011-00982

PATIENT
  Age: 67 Year
  Sex: Female
  Weight: 93 kg

DRUGS (8)
  1. AMLODIPINE [Suspect]
     Indication: HYPERTENSION
     Dosage: 5-10MG-DAILY-ORAL
     Route: 048
     Dates: start: 20101103, end: 20101109
  2. CORDAREX 200MG TABLET (SANOFI-AVENTIS) [Suspect]
     Indication: ATRIAL FIBRILLATION
     Dosage: 200-600MG-DAILY-ORAL
     Route: 048
     Dates: start: 20101103, end: 20101109
  3. DELIX [Suspect]
     Dosage: 2.5MG-BID-ORAL ; 2.5MG-DAILY-ORAL
     Route: 048
     Dates: start: 20101105, end: 20101109
  4. DELIX [Suspect]
     Dosage: 2.5MG-BID-ORAL ; 2.5MG-DAILY-ORAL
     Route: 048
     Dates: start: 20101118, end: 20101129
  5. DICLOFENAC [Suspect]
     Indication: SPINAL OSTEOARTHRITIS
     Dosage: ORAL
     Route: 048
     Dates: end: 20101102
  6. RAMIPRIL [Suspect]
     Dosage: 5MG-DAILY-ORAL
     Route: 048
     Dates: start: 20100923, end: 20101102
  7. IBUPROFEN TABLETS [Suspect]
     Indication: SPINAL OSTEOARTHRITIS
     Dosage: 200MG-ORAL
     Route: 048
     Dates: end: 20101102
  8. IBUHEXAL [Suspect]
     Indication: SPINAL OSTEOARTHRITIS
     Dosage: 400MG-DAILY-ORAL
     Route: 048
     Dates: start: 20101103, end: 20101103

REACTIONS (5)
  - RENAL FAILURE ACUTE [None]
  - TUBULOINTERSTITIAL NEPHRITIS [None]
  - CHEST PAIN [None]
  - PROTHROMBIN TIME PROLONGED [None]
  - HEART RATE INCREASED [None]
